FAERS Safety Report 15834482 (Version 2)
Quarter: 2019Q1

REPORT INFORMATION
  Report Type: Report from Study
  Country: KR (occurrence: KR)
  Receive Date: 20190116
  Receipt Date: 20190221
  Transmission Date: 20190417
  Serious: Yes (Hospitalization)
  Sender: FDA-Public Use
  Company Number: KR-TAKEDA-2018TUS032590

PATIENT
  Age: 74 Year
  Sex: Female

DRUGS (11)
  1. PLETAAL [Concomitant]
     Active Substance: CILOSTAZOL
     Indication: CEREBRAL INFARCTION
     Dosage: 200 MG, BID
     Route: 048
     Dates: start: 20180918
  2. ALBIS [Concomitant]
     Active Substance: BISMUTH SUBCITRATE\RANITIDINE HYDROCHLORIDE\SUCRALFATE
     Indication: PROPHYLAXIS AGAINST GASTROINTESTINAL ULCER
     Dosage: UNK UNK, QD
     Route: 048
     Dates: start: 20091120
  3. PONATINIB [Suspect]
     Active Substance: PONATINIB
     Indication: CHRONIC MYELOID LEUKAEMIA
     Dosage: 45 MILLIGRAM, QD
     Route: 048
     Dates: start: 20181026, end: 20181115
  4. PONATINIB [Suspect]
     Active Substance: PONATINIB
     Dosage: 30 MILLIGRAM, QD
     Route: 065
     Dates: start: 20181221, end: 20181230
  5. SOLONDO [Concomitant]
     Active Substance: PREDNISOLONE
     Indication: PRIMARY BILIARY CHOLANGITIS
     Dosage: 5 MILLIGRAM, QD
     Route: 048
     Dates: start: 20160628
  6. OROSARTAN [Concomitant]
     Indication: HYPERTENSION
     Dosage: UNK UNK, QD
     Route: 048
     Dates: start: 20180918
  7. DISGREN                            /00002701/ [Concomitant]
     Indication: CEREBRAL ARTERY STENOSIS
     Dosage: 300 MG, BID
     Route: 048
     Dates: start: 20160809
  8. LIPITOL [Concomitant]
     Indication: CEREBRAL INFARCTION
     Dosage: UNK UNK, QD
     Route: 048
     Dates: start: 20180918
  9. XYZAL [Concomitant]
     Active Substance: LEVOCETIRIZINE DIHYDROCHLORIDE
     Indication: HEPATITIS TOXIC
     Dosage: 5 MILLIGRAM, QD
     Route: 048
     Dates: start: 20160930
  10. URSA [Concomitant]
     Active Substance: URSODIOL
     Indication: HEPATITIS TOXIC
     Dosage: 200 MILLIGRAM, BID
     Route: 048
     Dates: start: 20131216
  11. DICAMAX D PLUS [Concomitant]
     Indication: OSTEOPOROSIS
     Dosage: UNK UNK, QD
     Route: 048
     Dates: start: 20160628

REACTIONS (4)
  - Hypertension [Recovering/Resolving]
  - Pyrexia [Recovered/Resolved]
  - Pulmonary oedema [Recovered/Resolved]
  - Femur fracture [Recovering/Resolving]

NARRATIVE: CASE EVENT DATE: 20181101
